FAERS Safety Report 9791594 (Version 1)
Quarter: 2014Q1

REPORT INFORMATION
  Report Type: Report from Study
  Country: IT (occurrence: IT)
  Receive Date: 20140102
  Receipt Date: 20140102
  Transmission Date: 20141002
  Serious: Yes (Other)
  Sender: FDA-Public Use
  Company Number: IT-ROCHE-1325151

PATIENT
  Sex: 0

DRUGS (8)
  1. MYCOPHENOLATE MOFETIL [Suspect]
     Indication: RENAL TRANSPLANT
     Dosage: 1.5-2 G PER DAY
     Route: 065
  2. MYCOPHENOLIC ACID [Suspect]
     Indication: RENAL TRANSPLANT
     Dosage: 0.720-1.440 G PER DAY
     Route: 065
  3. SIMULECT [Suspect]
     Indication: RENAL TRANSPLANT
     Route: 065
  4. CYCLOSPORINE [Suspect]
     Indication: RENAL TRANSPLANT
     Dosage: 3-9 MG/KG PER DAY
     Route: 065
  5. TACROLIMUS [Suspect]
     Indication: RENAL TRANSPLANT
     Dosage: 0.15-0.30 MG/KG PER DAY
     Route: 065
  6. SIROLIMUS [Suspect]
     Indication: RENAL TRANSPLANT
     Dosage: TROUGH LEVEL 10-15 NG/ML PER DAY
     Route: 065
  7. EVEROLIMUS [Suspect]
     Indication: RENAL TRANSPLANT
     Dosage: TROUGH LEVEL 5-8 NG/ML PER DAY
     Route: 065
  8. METHYLPREDNISOLONE [Concomitant]
     Dosage: 0.5-1 G PER DAY FOR 3 DAYS
     Route: 065

REACTIONS (17)
  - Basal cell carcinoma [Unknown]
  - Malignant melanoma [Unknown]
  - Xerosis [Unknown]
  - Dermatophytosis [Unknown]
  - Onychomycosis [Unknown]
  - Telangiectasia [Unknown]
  - Acne [Unknown]
  - Sebaceous hyperplasia [Unknown]
  - Gingival hyperplasia [Unknown]
  - Hypertrichosis [Unknown]
  - Aphthous stomatitis [Unknown]
  - Ecchymosis [Unknown]
  - Folliculitis [Unknown]
  - Dermatitis allergic [Unknown]
  - Eczema [Unknown]
  - Seborrhoeic dermatitis [Unknown]
  - Psoriasis [Unknown]
